FAERS Safety Report 13274845 (Version 6)
Quarter: 2017Q2

REPORT INFORMATION
  Report Type: Report from Study
  Country: US (occurrence: US)
  Receive Date: 20170227
  Receipt Date: 20170601
  Transmission Date: 20170830
  Serious: Yes (Hospitalization)
  Sender: FDA-Public Use
  Company Number: US-ACTELION-A-US2016-147269

PATIENT
  Age: 68 Year
  Sex: Female
  Weight: 82.54 kg

DRUGS (6)
  1. ADCIRCA [Concomitant]
     Active Substance: TADALAFIL
  2. ADEMPAS [Concomitant]
     Active Substance: RIOCIGUAT
  3. REMODULIN [Suspect]
     Active Substance: TREPROSTINIL
     Indication: PULMONARY ARTERIAL HYPERTENSION
     Route: 065
  4. OPSUMIT [Suspect]
     Active Substance: MACITENTAN
     Indication: PULMONARY ARTERIAL HYPERTENSION
     Dosage: 10 MG, QD
     Route: 048
     Dates: start: 20150726
  5. ORENITRAM [Concomitant]
     Active Substance: TREPROSTINIL
  6. LASIX [Concomitant]
     Active Substance: FUROSEMIDE

REACTIONS (31)
  - Fluid retention [Unknown]
  - Application site erythema [Unknown]
  - Heart rate increased [Unknown]
  - Retching [Unknown]
  - Pulmonary arterial hypertension [Unknown]
  - Syncope [Unknown]
  - Decreased appetite [Unknown]
  - Dizziness [Unknown]
  - Dyspnoea [Unknown]
  - Diarrhoea [Unknown]
  - Oxygen saturation decreased [Unknown]
  - Vomiting [Unknown]
  - Nausea [Unknown]
  - Fall [Unknown]
  - Hypotension [Unknown]
  - Disease progression [Unknown]
  - Pain [Unknown]
  - Feeling abnormal [Unknown]
  - Lymphadenopathy [Recovered/Resolved]
  - Application site pruritus [Unknown]
  - Blood potassium decreased [Recovered/Resolved]
  - Weight decreased [Unknown]
  - Urinary incontinence [Unknown]
  - Weight increased [Recovered/Resolved]
  - Gait disturbance [Unknown]
  - Oedema peripheral [Recovered/Resolved]
  - Blood pressure decreased [Unknown]
  - Headache [Unknown]
  - Blood potassium increased [Unknown]
  - Fatigue [Unknown]
  - Pain in extremity [Unknown]

NARRATIVE: CASE EVENT DATE: 20151014
